FAERS Safety Report 10266901 (Version 1)
Quarter: 2014Q2

REPORT INFORMATION
  Report Type: Spontaneous
  Country: US (occurrence: None)
  Receive Date: 20140626
  Receipt Date: 20140626
  Transmission Date: 20141212
  Serious: Yes (Other)
  Sender: FDA-Public Use
  Company Number: None

PATIENT
  Age: 76 Year
  Sex: Female
  Weight: 83.92 kg

DRUGS (8)
  1. NEXIUM [Suspect]
     Indication: GASTROOESOPHAGEAL REFLUX DISEASE
     Route: 048
     Dates: start: 2004, end: 20140428
  2. SYNTHROID [Concomitant]
  3. DILTIAXEM [Concomitant]
  4. FUROSEMIDE [Concomitant]
  5. AMITRIPTYLINE [Concomitant]
  6. KLONOPIN [Concomitant]
  7. MEGA D-3 [Concomitant]
  8. ULTRA CO Q 10 [Concomitant]

REACTIONS (1)
  - Cough [None]
